FAERS Safety Report 11383038 (Version 2)
Quarter: 2015Q3

REPORT INFORMATION
  Report Type: Spontaneous
  Country: CA (occurrence: CA)
  Receive Date: 20150814
  Receipt Date: 20150910
  Transmission Date: 20151125
  Serious: Yes (Death, Hospitalization, Other)
  Sender: FDA-Public Use
  Company Number: CA-GILEAD-2015-0167500

PATIENT
  Sex: Female

DRUGS (10)
  1. LAXILOSE [Concomitant]
     Dosage: 30 ML, QD
     Route: 048
  2. NOROXIN [Concomitant]
     Active Substance: NORFLOXACIN
     Dosage: 400 MG, QD
     Route: 048
  3. VITAMINS WITH MINERALS [Concomitant]
     Active Substance: MINERALS\VITAMINS
     Dosage: 1 DF, QD
     Route: 048
  4. RIFAXIMIN [Concomitant]
     Active Substance: RIFAXIMIN
     Dosage: 550 MG, BID
     Route: 048
  5. HARVONI [Suspect]
     Active Substance: LEDIPASVIR\SOFOSBUVIR
     Indication: CHRONIC HEPATITIS C
     Dosage: UNK
     Route: 065
     Dates: start: 20150326, end: 20150620
  6. TECTA [Concomitant]
     Active Substance: PANTOPRAZOLE MAGNESIUM
     Dosage: 40 MG, QD
     Route: 048
  7. CORGARD [Concomitant]
     Active Substance: NADOLOL
     Dosage: 20 MG, QD
     Route: 048
  8. ALDACTONE [Concomitant]
     Active Substance: SPIRONOLACTONE
     Dosage: 50 MG, QD
     Route: 048
  9. VENTOLIN [Concomitant]
     Active Substance: ALBUTEROL SULFATE
     Dosage: 2 DF, BID
     Route: 055
  10. FLAGYL [Concomitant]
     Active Substance: METRONIDAZOLE\METRONIDAZOLE HYDROCHLORIDE
     Dosage: 500 MG, BID
     Route: 048

REACTIONS (9)
  - Sepsis [Fatal]
  - Platelet count decreased [Not Recovered/Not Resolved]
  - Subdural haematoma [Fatal]
  - Fall [Not Recovered/Not Resolved]
  - Coagulopathy [Not Recovered/Not Resolved]
  - Head injury [Fatal]
  - Hepatic encephalopathy [Not Recovered/Not Resolved]
  - Blood bilirubin increased [Not Recovered/Not Resolved]
  - Confusional state [Not Recovered/Not Resolved]
